FAERS Safety Report 20772259 (Version 1)
Quarter: 2022Q2

REPORT INFORMATION
  Report Type: Spontaneous
  Country: US (occurrence: US)
  Receive Date: 20220502
  Receipt Date: 20220502
  Transmission Date: 20220721
  Serious: Yes (Other)
  Sender: FDA-Public Use
  Company Number: US-CELLTRION INC.-2022US005396

PATIENT

DRUGS (2)
  1. TRUXIMA [Suspect]
     Active Substance: RITUXIMAB-ABBS
     Indication: Cryoglobulinaemia
     Dosage: UNK MILLIGRAM PER MILLILITRE
  2. TRUXIMA [Suspect]
     Active Substance: RITUXIMAB-ABBS
     Indication: Systemic lupus erythematosus

REACTIONS (3)
  - Systemic lupus erythematosus [Unknown]
  - Cryoglobulinaemia [Unknown]
  - Off label use [Unknown]
